FAERS Safety Report 25271830 (Version 2)
Quarter: 2025Q2

REPORT INFORMATION
  Report Type: Spontaneous
  Country: US (occurrence: US)
  Receive Date: 20250506
  Receipt Date: 20250515
  Transmission Date: 20250716
  Serious: Yes (Life-Threatening, Hospitalization, Other)
  Sender: CIPLA
  Company Number: US-MLMSERVICE-20250418-PI482555-00256-1

PATIENT

DRUGS (4)
  1. PANTOPRAZOLE [Interacting]
     Active Substance: PANTOPRAZOLE
     Indication: Prophylaxis
     Dosage: 40 MILLIGRAM/ 1 DAY (PACKET VIA NASOGASTRIC TUBE)
  2. CARBIDOPA\LEVODOPA [Interacting]
     Active Substance: CARBIDOPA\LEVODOPA
     Indication: Parkinson^s disease
     Dosage: 1 DOSAGE FORM, TID (25 MG/100 MG) (NASOGASTRIC TUBE)
  3. CARBIDOPA\LEVODOPA [Interacting]
     Active Substance: CARBIDOPA\LEVODOPA
     Dosage: 2 DOSAGE FORM, TID (25 MG/100 MG) (DOSE INCREASED)
  4. HYDROMORPHONE [Concomitant]
     Active Substance: HYDROMORPHONE
     Indication: Pain
     Route: 065

REACTIONS (3)
  - Parkinsonism hyperpyrexia syndrome [Recovering/Resolving]
  - Drug interaction [Unknown]
  - Malabsorption from administration site [Unknown]
